FAERS Safety Report 6792360-1 (Version None)
Quarter: 2010Q2

REPORT INFORMATION
  Report Type: 
  Country: None (occurrence: None)
  Receive Date: 20100624
  Receipt Date: 20080926
  Transmission Date: 20101027
  Serious: No
  Sender: FDA-Public Use
  Company Number: US-PFIZER INC-2008063991

PATIENT
  Sex: Male
  Weight: 127.27 kg

DRUGS (10)
  1. SOMAVERT [Suspect]
     Indication: ACROMEGALY
     Dates: start: 20060101
  2. INSULIN [Concomitant]
     Indication: DIABETES MELLITUS
  3. TESTOSTERONE [Concomitant]
  4. TENORMIN [Concomitant]
     Indication: HYPERTENSION
  5. VALSARTAN [Concomitant]
     Indication: HYPERTENSION
  6. SYNTHROID [Concomitant]
  7. CELEBREX [Concomitant]
  8. SPIRIVA [Concomitant]
  9. ZYRTEC [Concomitant]
  10. ALL OTHER THERAPEUTIC PRODUCTS [Concomitant]

REACTIONS (1)
  - INSOMNIA [None]
